FAERS Safety Report 7629708-1 (Version None)
Quarter: 2011Q3

REPORT INFORMATION
  Report Type: 
  Country: None (occurrence: None)
  Receive Date: 20110722
  Receipt Date: 20110713
  Transmission Date: 20111222
  Serious: Yes (Death)
  Sender: FDA-Public Use
  Company Number: AU-ROCHE-790498

PATIENT
  Age: 32 Year
  Sex: Male

DRUGS (4)
  1. METHADONE HYDROCHLORIDE [Interacting]
     Route: 065
  2. METHYLENEDIOXYMETHAMPHETAMINE [Interacting]
     Route: 065
  3. DIAZEPAM [Suspect]
     Route: 065
  4. ALPRAZOLAM [Interacting]
     Route: 065

REACTIONS (4)
  - MULTIPLE INJURIES [None]
  - HEPATITIS C [None]
  - DRUG INTERACTION [None]
  - INJURY [None]
